FAERS Safety Report 8309768-5 (Version None)
Quarter: 2012Q2

REPORT INFORMATION
  Report Type: 
  Country: None (occurrence: None)
  Receive Date: 20120425
  Receipt Date: 20120417
  Transmission Date: 20120825
  Serious: Yes (Hospitalization, Other)
  Sender: FDA-Public Use
  Company Number: PHHY2012GB032421

PATIENT
  Age: 68 Year
  Sex: Male

DRUGS (1)
  1. ZOLEDRONIC [Suspect]
     Indication: PROSTATE CANCER METASTATIC
     Dosage: 2 MG, UNK
     Dates: start: 20100801

REACTIONS (12)
  - ANAEMIA [None]
  - HYPERPARATHYROIDISM [None]
  - HYPOPHOSPHATAEMIA [None]
  - PROSTATIC SPECIFIC ANTIGEN INCREASED [None]
  - LETHARGY [None]
  - HALLUCINATION, VISUAL [None]
  - HYPOCALCAEMIA [None]
  - DYSARTHRIA [None]
  - BLOOD ALKALINE PHOSPHATASE INCREASED [None]
  - SYNCOPE [None]
  - CONFUSIONAL STATE [None]
  - BONE PAIN [None]
